FAERS Safety Report 6992171-8 (Version None)
Quarter: 2010Q3

REPORT INFORMATION
  Report Type: 
  Country: None (occurrence: None)
  Receive Date: 20100917
  Receipt Date: 20100708
  Transmission Date: 20110219
  Serious: No
  Sender: FDA-Public Use
  Company Number: A0869245A

PATIENT
  Age: 22 Year
  Sex: Male

DRUGS (5)
  1. PROMACTA [Suspect]
     Dosage: 1TAB PER DAY
     Route: 048
     Dates: start: 20100701
  2. GLUCOPHAGE [Concomitant]
  3. STARLIX [Concomitant]
  4. ACNE MEDICATION [Concomitant]
  5. HEART MEDICATION [Concomitant]

REACTIONS (2)
  - ASTHENIA [None]
  - DIZZINESS [None]
